FAERS Safety Report 20035709 (Version 1)
Quarter: 2021Q4

REPORT INFORMATION
  Report Type: Spontaneous
  Country: US (occurrence: US)
  Receive Date: 20211104
  Receipt Date: 20211104
  Transmission Date: 20220304
  Serious: No
  Sender: FDA-Public Use
  Company Number: US-009507513-2110USA002564

PATIENT
  Sex: Male

DRUGS (2)
  1. KEYTRUDA [Suspect]
     Active Substance: PEMBROLIZUMAB
     Dosage: 200 MILLIGRAM, Q3W; INDICATION: GASTROESOPHAGEAL JUNCTION
     Route: 042
     Dates: start: 20201012
  2. KEYTRUDA [Suspect]
     Active Substance: PEMBROLIZUMAB
     Dosage: 400 MILLIGRAM, EVERY 6 WEEKS; INDICATION: GASTROESOPHAGEAL JUNCTION
     Route: 042
     Dates: start: 202103, end: 20210721

REACTIONS (3)
  - Rash [Recovered/Resolved]
  - Oral pain [Not Recovered/Not Resolved]
  - Stomatitis [Not Recovered/Not Resolved]

NARRATIVE: CASE EVENT DATE: 20210101
